FAERS Safety Report 25839174 (Version 5)
Quarter: 2025Q4

REPORT INFORMATION
  Report Type: Spontaneous
  Country: JP (occurrence: JP)
  Receive Date: 20250924
  Receipt Date: 20251222
  Transmission Date: 20260117
  Serious: Yes (Death, Congenital Anomaly)
  Sender: NOVARTIS
  Company Number: JP-002147023-NVSJ2025JP009504

PATIENT

DRUGS (4)
  1. KESIMPTA [Suspect]
     Active Substance: OFATUMUMAB
     Indication: Foetal exposure during pregnancy
     Dosage: MATERNAL EXPOSURE DURING PREGNANCY: MOTHER^S FIRST DOES WAS ON 26 SEP 2024, 20MG/DAY
     Route: 064
  2. KESIMPTA [Suspect]
     Active Substance: OFATUMUMAB
     Dosage: MATERNAL EXPOSURE DURING  PREGNANCY: MOTHER^S LAST DOES WAS ON 12 JUN 2025, 20MG/DAY
     Route: 064
  3. MOVICOL [Concomitant]
     Active Substance: POLYETHYLENE GLYCOL 3350\POTASSIUM CHLORIDE\SODIUM BICARBONATE\SODIUM CHLORIDE
     Indication: Foetal exposure during pregnancy
     Dosage: MATERNAL EXPOSURE DURING PREGNANCY:ADMINISTRATION TO MOTHER FROM 27 JUN 2025 TO 28 AUG 2025
     Route: 064
  4. TYSABRI [Concomitant]
     Active Substance: NATALIZUMAB
     Indication: Foetal exposure during pregnancy
     Dosage: MATERNAL EXPOSURE DURING PREGNANCY:ADMINISTRATION TO MOTHER FROM17 JUL 2025 TO 18 AUG 2025,300MG/DAY
     Route: 064

REACTIONS (2)
  - Anencephaly [Fatal]
  - Foetal exposure during pregnancy [Unknown]

NARRATIVE: CASE EVENT DATE: 20250825
